FAERS Safety Report 15259772 (Version 1)
Quarter: 2018Q3

REPORT INFORMATION
  Report Type: Spontaneous
  Country: US (occurrence: US)
  Receive Date: 20180809
  Receipt Date: 20180809
  Transmission Date: 20181010
  Serious: No
  Sender: FDA-Public Use
  Company Number: US-MYLANLABS-2018M1058945

PATIENT
  Sex: Female

DRUGS (1)
  1. ESTRADIOL TRANSDERMAL SYSTEM [Suspect]
     Active Substance: ESTRADIOL
     Indication: PRODUCT USED FOR UNKNOWN INDICATION
     Dosage: 0.075 MG/DAY, TWICE WEEKLY
     Route: 062

REACTIONS (4)
  - Off label use [Unknown]
  - Vaginal haemorrhage [Recovered/Resolved]
  - Product packaging quantity issue [Unknown]
  - Incorrect drug administration duration [Unknown]
